FAERS Safety Report 15169278 (Version 1)
Quarter: 2018Q3

REPORT INFORMATION
  Report Type: Spontaneous
  Country: IN (occurrence: IN)
  Receive Date: 20180720
  Receipt Date: 20180720
  Transmission Date: 20181010
  Serious: Yes (Other)
  Sender: FDA-Public Use
  Company Number: IN-ALKEM LABORATORIES LIMITED-IN-ALKEM-2016-00393

PATIENT
  Age: 22 Year
  Sex: Female

DRUGS (16)
  1. CLOFAZIMINE [Concomitant]
     Active Substance: CLOFAZIMINE
     Indication: TUBERCULOSIS
     Dosage: 100 MG, OD
  2. CLOFAZIMINE [Concomitant]
     Active Substance: CLOFAZIMINE
     Indication: PULMONARY TUBERCULOSIS
  3. AMINOSALICYLIC ACID [Concomitant]
     Active Substance: AMINOSALICYLIC ACID
     Indication: PULMONARY TUBERCULOSIS
  4. AMOXICILLIN,CLAVULANIC ACID [Concomitant]
     Active Substance: AMOXICILLIN\CLAVULANIC ACID
     Indication: PULMONARY TUBERCULOSIS
  5. LINEZOLID. [Suspect]
     Active Substance: LINEZOLID
     Indication: PULMONARY TUBERCULOSIS
     Dosage: 600 MG, OD
  6. LINEZOLID. [Suspect]
     Active Substance: LINEZOLID
     Indication: TUBERCULOSIS
  7. ETHAMBUTOL [Suspect]
     Active Substance: ETHAMBUTOL HYDROCHLORIDE
     Indication: PULMONARY TUBERCULOSIS
     Dosage: 800 MG, QD
  8. LEVOFLOXACIN. [Concomitant]
     Active Substance: LEVOFLOXACIN
     Indication: TUBERCULOSIS
     Dosage: 1000 MG, OD
  9. AMINOSALICYLIC ACID [Concomitant]
     Active Substance: AMINOSALICYLIC ACID
     Indication: TUBERCULOSIS
     Dosage: 9.2 MG, QD
  10. ETHAMBUTOL [Suspect]
     Active Substance: ETHAMBUTOL HYDROCHLORIDE
     Indication: TUBERCULOSIS
  11. CAPREOMYCIN [Concomitant]
     Active Substance: CAPREOMYCIN
     Indication: TUBERCULOSIS
  12. AMOXICILLIN,CLAVULANIC ACID [Concomitant]
     Active Substance: AMOXICILLIN\CLAVULANIC ACID
     Indication: TUBERCULOSIS
     Dosage: 625 MG, TID
  13. LEVOFLOXACIN. [Concomitant]
     Active Substance: LEVOFLOXACIN
     Indication: PULMONARY TUBERCULOSIS
  14. CYCLOSERINE. [Concomitant]
     Active Substance: CYCLOSERINE
     Indication: PULMONARY TUBERCULOSIS
     Dosage: 500 MG, OD
  15. CAPREOMYCIN [Concomitant]
     Active Substance: CAPREOMYCIN
     Indication: PULMONARY TUBERCULOSIS
     Dosage: 1 G, OD
  16. CYCLOSERINE. [Concomitant]
     Active Substance: CYCLOSERINE
     Indication: TUBERCULOSIS

REACTIONS (2)
  - Optic neuropathy [Recovered/Resolved]
  - Neuropathy peripheral [Recovered/Resolved]
